FAERS Safety Report 13648686 (Version 2)
Quarter: 2017Q2

REPORT INFORMATION
  Report Type: Other
  Country: DE (occurrence: DE)
  Receive Date: 20170613
  Receipt Date: 20170621
  Transmission Date: 20170830
  Serious: Yes (Other)
  Sender: FDA-Public Use
  Company Number: DE-CELLTRION INC.-2017DE004223

PATIENT

DRUGS (12)
  1. ENTOCORD [Concomitant]
  2. REMSIMA [Suspect]
     Active Substance: INFLIXIMAB
     Indication: CROHN^S DISEASE
     Dosage: 300 MG DISSOLVED IN 250 ML NACLO, 9%, UNK
     Route: 042
  3. REMSIMA [Suspect]
     Active Substance: INFLIXIMAB
     Dosage: 500 MG DISSOLVED IN 250 ML NACLO, 9%, UNK
     Route: 042
     Dates: start: 20160704, end: 20160704
  4. PREDNISOLONE. [Concomitant]
     Active Substance: PREDNISOLONE
     Dosage: 100 MG, UNK
     Dates: start: 20151008
  5. CORTISONE [Concomitant]
     Active Substance: CORTISONE\HYDROCORTISONE
  6. REMSIMA [Suspect]
     Active Substance: INFLIXIMAB
     Dosage: 300 MG DISSOLVED IN 250 ML NACLO, 9%, UNK
     Route: 042
  7. REMSIMA [Suspect]
     Active Substance: INFLIXIMAB
     Dosage: 300 MG DISSOLVED IN 250 ML NACLO, 9%, UNK
     Route: 042
  8. REMSIMA [Suspect]
     Active Substance: INFLIXIMAB
     Dosage: 300 MG DISSOLVED IN 250 ML NACLO, 9%, UNK
     Route: 042
     Dates: start: 20160531, end: 20160531
  9. MESALAZINE [Concomitant]
     Active Substance: MESALAMINE
     Dosage: 4000 MG, UNK
     Dates: start: 20151008, end: 20151108
  10. MESALAZINE [Concomitant]
     Active Substance: MESALAMINE
     Dosage: 2000 MG, UNK
     Dates: start: 20151109
  11. AZATHIOPRIN [Concomitant]
     Active Substance: AZATHIOPRINE
  12. REMSIMA [Suspect]
     Active Substance: INFLIXIMAB
     Dosage: 300 MG DISSOLVED IN 250 ML NACLO, 9%, UNK
     Route: 042

REACTIONS (3)
  - Hypertensive crisis [Recovered/Resolved]
  - Stridor [Recovered/Resolved]
  - Erythema [Recovered/Resolved]

NARRATIVE: CASE EVENT DATE: 20160704
